FAERS Safety Report 16394954 (Version 1)
Quarter: 2019Q2

REPORT INFORMATION
  Report Type: Spontaneous
  Country: US (occurrence: US)
  Receive Date: 20190604
  Receipt Date: 20190604
  Transmission Date: 20190711
  Serious: Yes (Hospitalization)
  Sender: FDA-Public Use
  Company Number: None

PATIENT
  Sex: Male

DRUGS (3)
  1. KEPPRA, RANITIDINE, PRILOSEC, BACLOFEN, OXCARBAZEPIN, [Concomitant]
  2. DIAZEPAM, PYRIDOXINE, CLONAZEP, CLONIDINE. [Concomitant]
  3. VIGABATRIN. [Suspect]
     Active Substance: VIGABATRIN
     Indication: EPILEPSY
     Route: 048
     Dates: start: 20180607

REACTIONS (2)
  - Respiratory disorder [None]
  - Therapy cessation [None]
